FAERS Safety Report 10033133 (Version 2)
Quarter: 2014Q2

REPORT INFORMATION
  Report Type: Spontaneous
  Country: IT (occurrence: IT)
  Receive Date: 20140324
  Receipt Date: 20140625
  Transmission Date: 20141212
  Serious: Yes (Hospitalization)
  Sender: FDA-Public Use
  Company Number: IT-WATSON-2014-05256

PATIENT
  Age: 73 Year
  Sex: Female
  Weight: 60 kg

DRUGS (1)
  1. GENTAMICIN (UNKNOWN) [Suspect]
     Indication: ENDOCARDITIS BACTERIAL
     Dosage: 160 MG, DAILY
     Route: 042
     Dates: start: 20140108, end: 20140111

REACTIONS (2)
  - Renal failure acute [Recovering/Resolving]
  - Oliguria [Recovering/Resolving]
